FAERS Safety Report 9676262 (Version 1)
Quarter: 2013Q4

REPORT INFORMATION
  Report Type: Spontaneous
  Country: US (occurrence: US)
  Receive Date: 20131107
  Receipt Date: 20131107
  Transmission Date: 20140711
  Serious: No
  Sender: FDA-Public Use
  Company Number: US-ENDO PHARMACEUTICALS INC.-HCDA20120008

PATIENT
  Sex: Male
  Weight: 137.11 kg

DRUGS (1)
  1. HYDROCODONE/ACETAMINOPHEN [Suspect]
     Indication: PAIN IN EXTREMITY
     Dosage: 15 MG/975 MG
     Route: 048
     Dates: start: 2002

REACTIONS (1)
  - Drug ineffective [Not Recovered/Not Resolved]
